FAERS Safety Report 17064238 (Version 32)
Quarter: 2022Q1

REPORT INFORMATION
  Report Type: Report from Study
  Country: CA (occurrence: CA)
  Receive Date: 20191122
  Receipt Date: 20220207
  Transmission Date: 20220423
  Serious: Yes (Other)
  Sender: FDA-Public Use
  Company Number: PHHY2017CA096958

PATIENT
  Sex: Female

DRUGS (8)
  1. SANDOSTATIN [Suspect]
     Active Substance: OCTREOTIDE ACETATE
     Indication: Neuroendocrine carcinoma metastatic
     Dosage: UNK (TEST DOSE)
     Route: 058
     Dates: start: 20150604, end: 20150604
  2. SANDOSTATIN [Suspect]
     Active Substance: OCTREOTIDE ACETATE
  3. SANDOSTATIN [Suspect]
     Active Substance: OCTREOTIDE ACETATE
  4. SANDOSTATIN LAR DEPOT [Suspect]
     Active Substance: OCTREOTIDE ACETATE
     Indication: Neuroendocrine carcinoma metastatic
     Dosage: 30 MG, Q2W
     Route: 030
     Dates: start: 20150609
  5. SANDOSTATIN LAR DEPOT [Suspect]
     Active Substance: OCTREOTIDE ACETATE
     Dosage: 30 MG, Q3W (EVERY 3 WEEKS)
     Route: 030
     Dates: start: 20160506
  6. SANDOSTATIN LAR DEPOT [Suspect]
     Active Substance: OCTREOTIDE ACETATE
     Dosage: 30 MG, BIW
     Route: 030
     Dates: start: 20180823
  7. SANDOSTATIN LAR DEPOT [Suspect]
     Active Substance: OCTREOTIDE ACETATE
     Dosage: 30 MG, Q2W (EVERY 2 WEEKS)
     Route: 030
     Dates: start: 20181128
  8. SANDOSTATIN LAR DEPOT [Suspect]
     Active Substance: OCTREOTIDE ACETATE
     Dosage: 30 MG, Q2W
     Route: 030
     Dates: start: 20150609

REACTIONS (29)
  - Gingival abscess [Unknown]
  - Thrombosis [Unknown]
  - Pneumonia [Recovering/Resolving]
  - Seizure [Unknown]
  - Hypothyroidism [Unknown]
  - Neoplasm malignant [Unknown]
  - Erythema [Unknown]
  - Blood pressure increased [Unknown]
  - Body temperature decreased [Unknown]
  - Tooth abscess [Unknown]
  - Hot flush [Not Recovered/Not Resolved]
  - Chills [Recovered/Resolved]
  - Faeces pale [Recovered/Resolved]
  - Musculoskeletal discomfort [Unknown]
  - Chills [Unknown]
  - Hyperhidrosis [Recovered/Resolved]
  - Gastrooesophageal reflux disease [Unknown]
  - Blood pressure diastolic increased [Unknown]
  - Faeces discoloured [Unknown]
  - Cholelithiasis [Unknown]
  - Vomiting [Recovered/Resolved]
  - Nausea [Recovered/Resolved]
  - Diarrhoea [Recovered/Resolved]
  - Vomiting [Unknown]
  - Nausea [Unknown]
  - Diarrhoea [Unknown]
  - Fatigue [Unknown]
  - Product reconstitution quality issue [Unknown]
  - Inappropriate schedule of product administration [Unknown]

NARRATIVE: CASE EVENT DATE: 20170101
